FAERS Safety Report 4596147-X (Version None)
Quarter: 2005Q1

REPORT INFORMATION
  Report Type: 
  Country: None (occurrence: None)
  Receive Date: 20050302
  Receipt Date: 20050221
  Transmission Date: 20050727
  Serious: Yes (Other)
  Sender: FDA-Public Use
  Company Number: GB-ROCHE-396098

PATIENT
  Age: 85 Year
  Sex: Male

DRUGS (9)
  1. TAMIFLU [Suspect]
     Indication: INFLUENZA
     Route: 048
     Dates: start: 20050126, end: 20050131
  2. SENNA [Concomitant]
     Dosage: TWO AT NIGHT.
  3. PARACETAMOL [Concomitant]
  4. FOLIC ACID [Concomitant]
  5. ISMN [Concomitant]
  6. FERROUS SULFATE TAB [Concomitant]
  7. DOCUSATE [Concomitant]
  8. TRITACE [Concomitant]
  9. LACTULOSE [Concomitant]

REACTIONS (4)
  - CHROMATURIA [None]
  - HAEMATURIA [None]
  - PROTEINURIA [None]
  - URINE ODOUR ABNORMAL [None]
